FAERS Safety Report 13733697 (Version 2)
Quarter: 2017Q3

REPORT INFORMATION
  Report Type: Report from Study
  Country: FR (occurrence: FR)
  Receive Date: 20170707
  Receipt Date: 20170713
  Transmission Date: 20171127
  Serious: Yes (Hospitalization, Other)
  Sender: FDA-Public Use
  Company Number: FR-BRISTOL-MYERS SQUIBB COMPANY-BMS-2017-060535

PATIENT
  Age: 21 Year
  Sex: Female
  Weight: 74.8 kg

DRUGS (1)
  1. ENTECAVIR. [Suspect]
     Active Substance: ENTECAVIR
     Indication: HEPATITIS B
     Dosage: 0.5 MG, QD
     Route: 065
     Dates: start: 20140623

REACTIONS (7)
  - Pain in extremity [Unknown]
  - Sternal fracture [Unknown]
  - Road traffic accident [Unknown]
  - Ligament sprain [Unknown]
  - Back pain [Unknown]
  - Neck pain [Unknown]
  - Spinal pain [Unknown]

NARRATIVE: CASE EVENT DATE: 201407
